FAERS Safety Report 9137912 (Version 1)
Quarter: 2013Q1

REPORT INFORMATION
  Report Type: Report from Study
  Country: US (occurrence: US)
  Receive Date: 20130304
  Receipt Date: 20130304
  Transmission Date: 20140127
  Serious: Yes (Hospitalization)
  Sender: FDA-Public Use
  Company Number: US-ABBOTT-13P-163-1054946-00

PATIENT
  Age: 54 Year
  Sex: Female

DRUGS (4)
  1. HUMIRA [Suspect]
     Indication: PSORIASIS
     Dates: start: 201212, end: 201301
  2. UNKNOWN BREATHING TREATMENT [Concomitant]
     Indication: PRODUCT USED FOR UNKNOWN INDICATION
  3. CYCLOSPORINE [Concomitant]
     Dates: start: 201301
  4. INSULIN [Concomitant]
     Indication: PRODUCT USED FOR UNKNOWN INDICATION

REACTIONS (2)
  - Chronic obstructive pulmonary disease [Recovered/Resolved]
  - Psoriasis [Recovered/Resolved]
